FAERS Safety Report 6706456-3 (Version None)
Quarter: 2010Q2

REPORT INFORMATION
  Report Type: 
  Country: None (occurrence: None)
  Receive Date: 20100503
  Receipt Date: 20080904
  Transmission Date: 20101027
  Serious: Yes (Other)
  Sender: FDA-Public Use
  Company Number: US-BAYER-200811428BCC

PATIENT
  Age: 38 Year
  Sex: Female
  Weight: 95 kg

DRUGS (1)
  1. ALEVE-D SINUS + COLD [Suspect]
     Indication: SINUS HEADACHE
     Dosage: AS USED: 220/120 MG
     Route: 048
     Dates: start: 20080330, end: 20080331

REACTIONS (6)
  - ASTHENIA [None]
  - DYSPNOEA [None]
  - FATIGUE [None]
  - HEADACHE [None]
  - MALAISE [None]
  - MENTAL IMPAIRMENT [None]
